FAERS Safety Report 21661756 (Version 2)
Quarter: 2023Q1

REPORT INFORMATION
  Report Type: Spontaneous
  Country: CA (occurrence: CA)
  Receive Date: 20221130
  Receipt Date: 20230221
  Transmission Date: 20230417
  Serious: Yes (Death, Life-Threatening, Disabling, Other)
  Sender: FDA-Public Use
  Company Number: CA-JNJFOC-20221149396

PATIENT
  Age: 80 Year
  Sex: Male
  Weight: 69 kg

DRUGS (301)
  1. ACETAMINOPHEN [Suspect]
     Active Substance: ACETAMINOPHEN
     Indication: Product used for unknown indication
     Route: 048
  2. ACETAMINOPHEN [Suspect]
     Active Substance: ACETAMINOPHEN
     Indication: Analgesic therapy
     Route: 048
  3. ACETAMINOPHEN [Suspect]
     Active Substance: ACETAMINOPHEN
     Route: 048
  4. ACETAMINOPHEN [Suspect]
     Active Substance: ACETAMINOPHEN
     Route: 048
  5. HYDROCORTISONE ACETATE [Suspect]
     Active Substance: HYDROCORTISONE ACETATE
     Indication: Product used for unknown indication
     Route: 065
  6. LIDOCAINE [Suspect]
     Active Substance: LIDOCAINE
     Indication: Constipation
     Route: 061
  7. ALLANTOIN [Suspect]
     Active Substance: ALLANTOIN
     Indication: Off label use
     Route: 048
  8. ALLANTOIN [Suspect]
     Active Substance: ALLANTOIN
     Indication: Intentional product misuse
     Route: 048
  9. ALLANTOIN [Suspect]
     Active Substance: ALLANTOIN
     Indication: Constipation
  10. ALLOPURINOL [Suspect]
     Active Substance: ALLOPURINOL
     Indication: Product used for unknown indication
     Route: 048
  11. ALLOPURINOL [Suspect]
     Active Substance: ALLOPURINOL
     Indication: Blood uric acid increased
     Route: 048
  12. ALLOPURINOL [Suspect]
     Active Substance: ALLOPURINOL
     Route: 048
  13. ALLOPURINOL [Suspect]
     Active Substance: ALLOPURINOL
     Route: 048
  14. ALOE VERA LEAF [Suspect]
     Active Substance: ALOE VERA LEAF
     Indication: Constipation
     Route: 065
  15. ALUMINUM HYDROXIDE\MAGNESIUM HYDROXIDE [Suspect]
     Active Substance: ALUMINUM HYDROXIDE\MAGNESIUM HYDROXIDE
     Indication: Constipation
     Route: 054
  16. AMIODARONE [Suspect]
     Active Substance: AMIODARONE
     Indication: Ventricular fibrillation
     Route: 042
  17. AMIODARONE [Suspect]
     Active Substance: AMIODARONE
     Indication: Product used for unknown indication
     Route: 042
  18. AMIODARONE [Suspect]
     Active Substance: AMIODARONE
     Indication: Drug therapy
     Route: 042
  19. AMIODARONE HYDROCHLORIDE [Suspect]
     Active Substance: AMIODARONE HYDROCHLORIDE
     Indication: Ventricular fibrillation
     Route: 042
  20. AMIODARONE HYDROCHLORIDE [Suspect]
     Active Substance: AMIODARONE HYDROCHLORIDE
     Indication: Product used for unknown indication
     Route: 042
  21. AMIODARONE HYDROCHLORIDE [Suspect]
     Active Substance: AMIODARONE HYDROCHLORIDE
     Indication: Drug therapy
     Route: 042
  22. AMIODARONE HYDROCHLORIDE [Suspect]
     Active Substance: AMIODARONE HYDROCHLORIDE
     Route: 042
  23. AMIODARONE HYDROCHLORIDE [Suspect]
     Active Substance: AMIODARONE HYDROCHLORIDE
     Route: 042
  24. AMMONIUM CHLORIDE [Suspect]
     Active Substance: AMMONIUM CHLORIDE
     Indication: Thrombosis
     Route: 065
  25. SODIUM CITRATE [Suspect]
     Active Substance: SODIUM CITRATE
     Indication: Thrombosis
     Route: 065
  26. SODIUM CITRATE [Suspect]
     Active Substance: SODIUM CITRATE
     Route: 065
  27. SODIUM CITRATE [Suspect]
     Active Substance: SODIUM CITRATE
     Route: 065
  28. SODIUM CITRATE [Suspect]
     Active Substance: SODIUM CITRATE
     Route: 065
  29. ATROVENT [Suspect]
     Active Substance: IPRATROPIUM BROMIDE
     Indication: Sleep disorder therapy
     Route: 065
  30. ATROVENT [Suspect]
     Active Substance: IPRATROPIUM BROMIDE
     Indication: Product used for unknown indication
     Route: 050
  31. ATROVENT [Suspect]
     Active Substance: IPRATROPIUM BROMIDE
     Indication: Dyspnoea
     Route: 065
  32. ATROVENT [Suspect]
     Active Substance: IPRATROPIUM BROMIDE
     Route: 065
  33. ATROVENT [Suspect]
     Active Substance: IPRATROPIUM BROMIDE
     Route: 065
  34. ATROVENT [Suspect]
     Active Substance: IPRATROPIUM BROMIDE
     Route: 065
  35. ATROVENT [Suspect]
     Active Substance: IPRATROPIUM BROMIDE
     Route: 065
  36. BETAMETHASONE [Suspect]
     Active Substance: BETAMETHASONE
     Indication: Swelling
     Route: 065
  37. BETAMETHASONE [Suspect]
     Active Substance: BETAMETHASONE
     Indication: Product used for unknown indication
     Route: 061
  38. BETAMETHASONE [Suspect]
     Active Substance: BETAMETHASONE
     Route: 065
  39. BETAMETHASONE [Suspect]
     Active Substance: BETAMETHASONE
     Route: 061
  40. BETAMETHASONE [Suspect]
     Active Substance: BETAMETHASONE
     Route: 061
  41. BETAMETHASONE DIPROPIONATE\CLIOQUINOL [Suspect]
     Active Substance: BETAMETHASONE DIPROPIONATE\CLIOQUINOL
     Indication: Swelling
     Route: 061
  42. BISMUTH [Suspect]
     Active Substance: BISMUTH
     Indication: Constipation
     Route: 065
  43. BUFEXAMAC [Suspect]
     Active Substance: BUFEXAMAC
     Indication: Constipation
     Route: 065
  44. CALCITRIOL [Suspect]
     Active Substance: CALCITRIOL
     Indication: Vitamin D
     Route: 048
  45. CALCITRIOL [Suspect]
     Active Substance: CALCITRIOL
     Indication: Product used for unknown indication
     Route: 048
  46. CALCITRIOL [Suspect]
     Active Substance: CALCITRIOL
     Route: 065
  47. CALCITRIOL [Suspect]
     Active Substance: CALCITRIOL
     Route: 065
  48. CALCIUM CARBONATE [Suspect]
     Active Substance: CALCIUM CARBONATE
     Indication: Product used for unknown indication
     Route: 065
  49. HERBALS [Suspect]
     Active Substance: HERBALS
     Indication: Nutritional supplementation
     Route: 042
  50. MEDIUM-CHAIN TRIGLYCERIDES [Suspect]
     Active Substance: MEDIUM-CHAIN TRIGLYCERIDES
     Indication: Constipation
     Route: 065
  51. SAFFLOWER [Suspect]
     Active Substance: SAFFLOWER
     Indication: Constipation
     Route: 065
  52. CEFTRIAXONE [Suspect]
     Active Substance: CEFTRIAXONE
     Indication: Product used for unknown indication
     Route: 042
  53. CEFTRIAXONE [Suspect]
     Active Substance: CEFTRIAXONE
     Indication: Bacterial infection
     Route: 042
  54. CEFTRIAXONE [Suspect]
     Active Substance: CEFTRIAXONE
     Route: 042
  55. CEFTRIAXONE [Suspect]
     Active Substance: CEFTRIAXONE
     Route: 042
  56. CHLORAMPHENICOL PALMITATE [Suspect]
     Active Substance: CHLORAMPHENICOL PALMITATE
     Indication: Bacterial infection
     Route: 065
  57. CHLORPHENIRAMINE [Suspect]
     Active Substance: CHLORPHENIRAMINE
     Indication: Thrombosis
     Route: 065
  58. CITRIC ACID [Suspect]
     Active Substance: CITRIC ACID MONOHYDRATE
     Indication: Nutritional supplementation
     Route: 065
  59. DALTEPARIN SODIUM [Suspect]
     Active Substance: DALTEPARIN SODIUM
     Indication: Pulmonary embolism
     Route: 065
  60. DALTEPARIN SODIUM [Suspect]
     Active Substance: DALTEPARIN SODIUM
     Indication: Product used for unknown indication
     Route: 065
  61. DIPYRONE [Suspect]
     Active Substance: DIPYRONE
     Indication: Vitamin supplementation
     Route: 042
  62. DIPYRONE [Suspect]
     Active Substance: DIPYRONE
     Route: 042
  63. DIPYRONE [Suspect]
     Active Substance: DIPYRONE
     Route: 042
  64. DISTIGMINE BROMIDE [Suspect]
     Active Substance: DISTIGMINE BROMIDE
     Indication: Dyspnoea
     Route: 048
  65. DISTIGMINE BROMIDE [Suspect]
     Active Substance: DISTIGMINE BROMIDE
     Route: 048
  66. .ALPHA.-TOCOPHEROL ACETATE, DL- [Suspect]
     Active Substance: .ALPHA.-TOCOPHEROL ACETATE, DL-
     Indication: Constipation
     Route: 065
  67. DOBUTAMINE [Suspect]
     Active Substance: DOBUTAMINE HYDROCHLORIDE
     Indication: Product used for unknown indication
     Route: 065
  68. DOBUTAMINE [Suspect]
     Active Substance: DOBUTAMINE HYDROCHLORIDE
     Indication: Cardiogenic shock
     Route: 042
  69. DOBUTAMINE [Suspect]
     Active Substance: DOBUTAMINE HYDROCHLORIDE
     Route: 042
  70. DOBUTAMINE [Suspect]
     Active Substance: DOBUTAMINE HYDROCHLORIDE
     Route: 042
  71. DULCOLAX (BISACODYL) [Suspect]
     Active Substance: BISACODYL
     Indication: Product used for unknown indication
     Route: 054
  72. DULCOLAX (BISACODYL) [Suspect]
     Active Substance: BISACODYL
     Indication: Constipation
     Route: 065
  73. DULCOLAX (BISACODYL) [Suspect]
     Active Substance: BISACODYL
     Indication: Ventricular fibrillation
     Route: 065
  74. DULCOLAX (BISACODYL) [Suspect]
     Active Substance: BISACODYL
     Indication: Dyspnoea
     Route: 054
  75. DULCOLAX (BISACODYL) [Suspect]
     Active Substance: BISACODYL
     Indication: Drug therapy
     Route: 054
  76. DULCOLAX (BISACODYL) [Suspect]
     Active Substance: BISACODYL
     Route: 054
  77. DULCOLAX (BISACODYL) [Suspect]
     Active Substance: BISACODYL
     Route: 054
  78. DULCOLAX (BISACODYL) [Suspect]
     Active Substance: BISACODYL
     Route: 054
  79. DULCOLAX (BISACODYL) [Suspect]
     Active Substance: BISACODYL
     Route: 054
  80. DULCOLAX (BISACODYL) [Suspect]
     Active Substance: BISACODYL
     Route: 054
  81. FLUTICASONE FUROATE\VILANTEROL TRIFENATATE [Suspect]
     Active Substance: FLUTICASONE FUROATE\VILANTEROL TRIFENATATE
     Indication: Product used for unknown indication
     Route: 065
  82. FLUTICASONE FUROATE\VILANTEROL TRIFENATATE [Suspect]
     Active Substance: FLUTICASONE FUROATE\VILANTEROL TRIFENATATE
     Indication: Nutritional supplementation
  83. FRAGMIN [Suspect]
     Active Substance: DALTEPARIN SODIUM
     Indication: Thrombosis
     Route: 042
  84. FRAGMIN [Suspect]
     Active Substance: DALTEPARIN SODIUM
     Indication: Pulmonary embolism
     Route: 065
  85. FRAGMIN [Suspect]
     Active Substance: DALTEPARIN SODIUM
     Indication: Product used for unknown indication
     Route: 065
  86. FURAZOLIDONE [Suspect]
     Active Substance: FURAZOLIDONE
     Indication: Product used for unknown indication
     Route: 042
  87. FURAZOLIDONE [Suspect]
     Active Substance: FURAZOLIDONE
     Route: 042
  88. GABAPENTIN [Suspect]
     Active Substance: GABAPENTIN
     Indication: Product used for unknown indication
     Route: 048
  89. GABAPENTIN [Suspect]
     Active Substance: GABAPENTIN
     Indication: Neuralgia
     Route: 065
  90. GABAPENTIN [Suspect]
     Active Substance: GABAPENTIN
     Indication: Intentional product misuse
     Route: 048
  91. GABAPENTIN [Suspect]
     Active Substance: GABAPENTIN
     Route: 048
  92. GABAPENTIN [Suspect]
     Active Substance: GABAPENTIN
     Route: 065
  93. DEXTROSE [Suspect]
     Active Substance: DEXTROSE
     Indication: Product used for unknown indication
     Route: 042
  94. DEXTROSE [Suspect]
     Active Substance: DEXTROSE
     Indication: Nutritional supplementation
     Route: 042
  95. GLYCERYL MONOSTEARATE [Suspect]
     Active Substance: GLYCERYL MONOSTEARATE
     Indication: Constipation
     Route: 065
  96. HEPARIN SODIUM\SODIUM CHLORIDE [Suspect]
     Active Substance: HEPARIN SODIUM\SODIUM CHLORIDE
     Indication: Product used for unknown indication
     Route: 065
  97. HEPARIN SODIUM\SODIUM CHLORIDE [Suspect]
     Active Substance: HEPARIN SODIUM\SODIUM CHLORIDE
     Route: 042
  98. HEPARIN SODIUM\SODIUM CHLORIDE [Suspect]
     Active Substance: HEPARIN SODIUM\SODIUM CHLORIDE
     Route: 042
  99. HEPARIN SODIUM\SODIUM CHLORIDE [Suspect]
     Active Substance: HEPARIN SODIUM\SODIUM CHLORIDE
     Route: 042
  100. HEPARIN SODIUM\SODIUM CHLORIDE [Suspect]
     Active Substance: HEPARIN SODIUM\SODIUM CHLORIDE
     Route: 042
  101. HEPARIN [Suspect]
     Active Substance: HEPARIN SODIUM
     Indication: Anticoagulant therapy
     Route: 042
  102. HEPARIN [Suspect]
     Active Substance: HEPARIN SODIUM
     Route: 042
  103. HYDROMORPHONE [Suspect]
     Active Substance: HYDROMORPHONE
     Indication: Product used for unknown indication
     Route: 065
  104. HYDROMORPHONE [Suspect]
     Active Substance: HYDROMORPHONE
     Indication: Analgesic therapy
     Route: 065
  105. INSULIN ASPART [Suspect]
     Active Substance: INSULIN ASPART
     Indication: Diabetes mellitus
     Route: 065
  106. INSULIN ASPART [Suspect]
     Active Substance: INSULIN ASPART
     Route: 058
  107. INSULIN ASPART [Suspect]
     Active Substance: INSULIN ASPART
     Route: 065
  108. INSULIN ASPART [Suspect]
     Active Substance: INSULIN ASPART
     Route: 058
  109. INSULIN ASPART [Suspect]
     Active Substance: INSULIN ASPART
     Route: 065
  110. INSULIN ASPART [Suspect]
     Active Substance: INSULIN ASPART
     Route: 058
  111. INSULIN DEGLUDEC [Suspect]
     Active Substance: INSULIN DEGLUDEC
     Indication: Product used for unknown indication
     Route: 058
  112. INSULIN DEGLUDEC [Suspect]
     Active Substance: INSULIN DEGLUDEC
     Indication: Diabetes mellitus
     Route: 058
  113. INSULIN DEGLUDEC [Suspect]
     Active Substance: INSULIN DEGLUDEC
     Route: 065
  114. INSULIN DEGLUDEC [Suspect]
     Active Substance: INSULIN DEGLUDEC
     Route: 058
  115. IPRATROPIUM BROMIDE [Suspect]
     Active Substance: IPRATROPIUM BROMIDE
     Indication: Product used for unknown indication
     Route: 065
  116. IPRATROPIUM BROMIDE [Suspect]
     Active Substance: IPRATROPIUM BROMIDE
     Indication: Dyspnoea
     Route: 065
  117. IPRATROPIUM BROMIDE [Suspect]
     Active Substance: IPRATROPIUM BROMIDE
     Indication: Sleep disorder therapy
     Route: 065
  118. IPRATROPIUM BROMIDE [Suspect]
     Active Substance: IPRATROPIUM BROMIDE
     Route: 065
  119. IPRATROPIUM BROMIDE [Suspect]
     Active Substance: IPRATROPIUM BROMIDE
     Route: 065
  120. ISOPROPYL MYRISTATE [Suspect]
     Active Substance: ISOPROPYL MYRISTATE
     Indication: Constipation
     Route: 065
  121. LANTHANUM CARBONATE [Suspect]
     Active Substance: LANTHANUM CARBONATE
     Indication: Hyperphosphataemia
     Route: 065
  122. LANTHANUM CARBONATE [Suspect]
     Active Substance: LANTHANUM CARBONATE
     Indication: Blood phosphorus increased
     Route: 065
  123. LANTHANUM CARBONATE [Suspect]
     Active Substance: LANTHANUM CARBONATE
     Route: 048
  124. LANTHANUM CARBONATE [Suspect]
     Active Substance: LANTHANUM CARBONATE
     Route: 065
  125. LANTHANUM CARBONATE [Suspect]
     Active Substance: LANTHANUM CARBONATE
     Route: 048
  126. POLYETHYLENE GLYCOLS [Suspect]
     Active Substance: POLYETHYLENE GLYCOLS
     Indication: Product used for unknown indication
     Route: 048
  127. POLYETHYLENE GLYCOLS [Suspect]
     Active Substance: POLYETHYLENE GLYCOLS
     Indication: Constipation
     Route: 048
  128. POLYETHYLENE GLYCOL 3350 [Suspect]
     Active Substance: POLYETHYLENE GLYCOL 3350
     Indication: Product used for unknown indication
     Route: 048
  129. POLYETHYLENE GLYCOL 3350 [Suspect]
     Active Substance: POLYETHYLENE GLYCOL 3350
     Indication: Constipation
     Route: 048
  130. POLYETHYLENE GLYCOL 3350 [Suspect]
     Active Substance: POLYETHYLENE GLYCOL 3350
     Route: 048
  131. POLYETHYLENE GLYCOL 3350 [Suspect]
     Active Substance: POLYETHYLENE GLYCOL 3350
     Route: 048
  132. POLYETHYLENE GLYCOL 3350 [Suspect]
     Active Substance: POLYETHYLENE GLYCOL 3350
     Route: 048
  133. POLYETHYLENE GLYCOL 3350 [Suspect]
     Active Substance: POLYETHYLENE GLYCOL 3350
     Route: 048
  134. POLYETHYLENE GLYCOL 3350 [Suspect]
     Active Substance: POLYETHYLENE GLYCOL 3350
     Route: 048
  135. MALTOSE [Suspect]
     Active Substance: MALTOSE
     Indication: Nutritional supplementation
     Route: 065
  136. MALTOSE [Suspect]
     Active Substance: MALTOSE
     Route: 042
  137. MANNITOL [Suspect]
     Active Substance: MANNITOL
     Indication: Nutritional supplementation
     Route: 042
  138. MANNITOL [Suspect]
     Active Substance: MANNITOL
     Route: 042
  139. MELATONIN [Suspect]
     Active Substance: MELATONIN
     Indication: Sleep disorder therapy
     Route: 048
  140. MELATONIN [Suspect]
     Active Substance: MELATONIN
     Indication: Product used for unknown indication
     Route: 048
  141. MELATONIN [Suspect]
     Active Substance: MELATONIN
     Route: 048
  142. MELATONIN [Suspect]
     Active Substance: MELATONIN
     Route: 048
  143. METRONIDAZOLE [Suspect]
     Active Substance: METRONIDAZOLE
     Indication: Bacterial infection
     Route: 065
  144. METRONIDAZOLE [Suspect]
     Active Substance: METRONIDAZOLE
     Route: 048
  145. METRONIDAZOLE [Suspect]
     Active Substance: METRONIDAZOLE
     Route: 048
  146. SODIUM PHOSPHATE, MONOBASIC [Suspect]
     Active Substance: SODIUM PHOSPHATE, MONOBASIC
     Indication: Product used for unknown indication
     Route: 054
  147. SODIUM PHOSPHATE, MONOBASIC [Suspect]
     Active Substance: SODIUM PHOSPHATE, MONOBASIC
     Indication: Constipation
     Route: 065
  148. SODIUM PHOSPHATE, MONOBASIC [Suspect]
     Active Substance: SODIUM PHOSPHATE, MONOBASIC
     Route: 065
  149. SODIUM PHOSPHATE, MONOBASIC [Suspect]
     Active Substance: SODIUM PHOSPHATE, MONOBASIC
     Route: 054
  150. SODIUM PHOSPHATE, MONOBASIC [Suspect]
     Active Substance: SODIUM PHOSPHATE, MONOBASIC
     Route: 065
  151. SODIUM PHOSPHATE, MONOBASIC [Suspect]
     Active Substance: SODIUM PHOSPHATE, MONOBASIC
     Route: 054
  152. NATAMYCIN [Suspect]
     Active Substance: NATAMYCIN
     Indication: Bacterial infection
     Route: 065
  153. NOREPINEPHRINE [Suspect]
     Active Substance: NOREPINEPHRINE
     Indication: Stress
     Route: 065
  154. NOREPINEPHRINE [Suspect]
     Active Substance: NOREPINEPHRINE
     Indication: Product used for unknown indication
     Route: 042
  155. NOREPINEPHRINE [Suspect]
     Active Substance: NOREPINEPHRINE
     Route: 042
  156. NOREPINEPHRINE BITARTRATE [Suspect]
     Active Substance: NOREPINEPHRINE BITARTRATE
     Indication: Stress
     Route: 048
  157. NOREPINEPHRINE BITARTRATE [Suspect]
     Active Substance: NOREPINEPHRINE BITARTRATE
     Route: 042
  158. NOREPINEPHRINE BITARTRATE [Suspect]
     Active Substance: NOREPINEPHRINE BITARTRATE
     Route: 048
  159. NOREPINEPHRINE BITARTRATE [Suspect]
     Active Substance: NOREPINEPHRINE BITARTRATE
     Route: 048
  160. CITRUS FIBER [Suspect]
     Active Substance: CITRUS FIBER
     Indication: Vitamin supplementation
     Route: 042
  161. ONDANSETRON [Suspect]
     Active Substance: ONDANSETRON
     Indication: Vomiting
     Route: 065
  162. ONDANSETRON [Suspect]
     Active Substance: ONDANSETRON
     Indication: Product used for unknown indication
     Route: 042
  163. ONDANSETRON [Suspect]
     Active Substance: ONDANSETRON
     Indication: Nausea
     Route: 042
  164. ONDANSETRON [Suspect]
     Active Substance: ONDANSETRON
     Route: 042
  165. ONDANSETRON [Suspect]
     Active Substance: ONDANSETRON
     Route: 042
  166. ONDANSETRON [Suspect]
     Active Substance: ONDANSETRON
     Route: 042
  167. ONDANSETRON [Suspect]
     Active Substance: ONDANSETRON
     Route: 042
  168. ONDANSETRON [Suspect]
     Active Substance: ONDANSETRON
     Route: 042
  169. OSELTAMIVIR PHOSPHATE [Suspect]
     Active Substance: OSELTAMIVIR PHOSPHATE
     Indication: Product used for unknown indication
     Route: 054
  170. OSELTAMIVIR PHOSPHATE [Suspect]
     Active Substance: OSELTAMIVIR PHOSPHATE
     Indication: Chronic obstructive pulmonary disease
     Route: 065
  171. OSELTAMIVIR PHOSPHATE [Suspect]
     Active Substance: OSELTAMIVIR PHOSPHATE
     Route: 054
  172. OTRIVIN [Suspect]
     Active Substance: XYLOMETAZOLINE
     Indication: Dyspnoea
     Route: 065
  173. HERBALS [Suspect]
     Active Substance: HERBALS
     Indication: Nutritional supplementation
     Route: 065
  174. HERBALS\PAULLINIA CUPANA SEED [Suspect]
     Active Substance: HERBALS\PAULLINIA CUPANA SEED
     Indication: Nutritional supplementation
     Route: 042
  175. HERBALS\PAULLINIA CUPANA SEED [Suspect]
     Active Substance: HERBALS\PAULLINIA CUPANA SEED
     Indication: Vitamin supplementation
     Route: 042
  176. HERBALS\PAULLINIA CUPANA SEED [Suspect]
     Active Substance: HERBALS\PAULLINIA CUPANA SEED
     Route: 042
  177. PHENOXYETHANOL [Suspect]
     Active Substance: PHENOXYETHANOL
     Indication: Constipation
     Route: 042
  178. PHYTONADIONE [Suspect]
     Active Substance: PHYTONADIONE
     Indication: Vitamin supplementation
     Route: 042
  179. PHYTONADIONE [Suspect]
     Active Substance: PHYTONADIONE
     Indication: Product used for unknown indication
     Route: 042
  180. PHYTONADIONE [Suspect]
     Active Substance: PHYTONADIONE
     Indication: Off label use
     Route: 042
  181. PHYTONADIONE [Suspect]
     Active Substance: PHYTONADIONE
     Route: 042
  182. POTASSIUM CHLORATE [Suspect]
     Active Substance: POTASSIUM CHLORATE
     Indication: Product used for unknown indication
     Route: 065
  183. POTASSIUM CHLORATE [Suspect]
     Active Substance: POTASSIUM CHLORATE
     Route: 065
  184. POTASSIUM CHLORATE [Suspect]
     Active Substance: POTASSIUM CHLORATE
     Route: 065
  185. POTASSIUM CHLORATE [Suspect]
     Active Substance: POTASSIUM CHLORATE
     Route: 065
  186. PREVACID [Suspect]
     Active Substance: LANSOPRAZOLE
     Indication: Product used for unknown indication
     Route: 048
  187. PREVACID [Suspect]
     Active Substance: LANSOPRAZOLE
     Indication: Antacid therapy
     Route: 048
  188. PYRIDOXINE HYDROCHLORIDE [Suspect]
     Active Substance: PYRIDOXINE HYDROCHLORIDE
     Indication: Vitamin supplementation
     Route: 048
  189. PYRIDOXINE HYDROCHLORIDE [Suspect]
     Active Substance: PYRIDOXINE HYDROCHLORIDE
     Indication: Product used for unknown indication
     Route: 048
  190. PYRIDOXINE HYDROCHLORIDE [Suspect]
     Active Substance: PYRIDOXINE HYDROCHLORIDE
     Route: 065
  191. PYRIDOXINE HYDROCHLORIDE [Suspect]
     Active Substance: PYRIDOXINE HYDROCHLORIDE
     Route: 048
  192. PYRIDOXINE HYDROCHLORIDE [Suspect]
     Active Substance: PYRIDOXINE HYDROCHLORIDE
     Route: 048
  193. PYRIDOXINE HYDROCHLORIDE [Suspect]
     Active Substance: PYRIDOXINE HYDROCHLORIDE
     Route: 048
  194. VITAMIN A PALMITATE [Suspect]
     Active Substance: VITAMIN A PALMITATE
     Indication: Constipation
     Route: 065
  195. ALBUTEROL SULFATE [Suspect]
     Active Substance: ALBUTEROL SULFATE
     Indication: Product used for unknown indication
     Route: 065
  196. ALBUTEROL SULFATE [Suspect]
     Active Substance: ALBUTEROL SULFATE
     Indication: Chronic obstructive pulmonary disease
     Route: 065
  197. HERBALS [Suspect]
     Active Substance: HERBALS
     Indication: Constipation
     Route: 065
  198. SIMVASTATIN [Suspect]
     Active Substance: SIMVASTATIN
     Indication: Vitamin supplementation
     Route: 048
  199. SIMVASTATIN [Suspect]
     Active Substance: SIMVASTATIN
     Indication: Blood cholesterol increased
     Route: 048
  200. SIMVASTATIN [Suspect]
     Active Substance: SIMVASTATIN
     Route: 048
  201. SODIUM BICARBONATE [Suspect]
     Active Substance: SODIUM BICARBONATE
     Indication: Nutritional supplementation
     Route: 065
  202. SODIUM FERRIC GLUCONATE COMPLEX [Suspect]
     Active Substance: SODIUM FERRIC GLUCONATE COMPLEX
     Indication: Product used for unknown indication
     Route: 042
  203. SODIUM FERRIC GLUCONATE COMPLEX [Suspect]
     Active Substance: SODIUM FERRIC GLUCONATE COMPLEX
     Indication: Iron deficiency
     Route: 042
  204. SODIUM FERRIC GLUCONATE COMPLEX [Suspect]
     Active Substance: SODIUM FERRIC GLUCONATE COMPLEX
     Route: 042
  205. SODIUM FERRIC GLUCONATE COMPLEX [Suspect]
     Active Substance: SODIUM FERRIC GLUCONATE COMPLEX
     Route: 042
  206. SODIUM FERRIC GLUCONATE COMPLEX [Suspect]
     Active Substance: SODIUM FERRIC GLUCONATE COMPLEX
     Route: 042
  207. SODIUM FERRIC GLUCONATE COMPLEX [Suspect]
     Active Substance: SODIUM FERRIC GLUCONATE COMPLEX
     Route: 042
  208. SODIUM FERRIC GLUCONATE COMPLEX [Suspect]
     Active Substance: SODIUM FERRIC GLUCONATE COMPLEX
     Route: 042
  209. SODIUM FERRIC GLUCONATE COMPLEX [Suspect]
     Active Substance: SODIUM FERRIC GLUCONATE COMPLEX
     Route: 042
  210. SODIUM FERRIC GLUCONATE COMPLEX [Suspect]
     Active Substance: SODIUM FERRIC GLUCONATE COMPLEX
     Route: 042
  211. SODIUM PICOSULFATE [Suspect]
     Active Substance: SODIUM PICOSULFATE
     Indication: Constipation
     Route: 054
  212. SODIUM PICOSULFATE [Suspect]
     Active Substance: SODIUM PICOSULFATE
     Indication: Analgesic therapy
     Route: 065
  213. SODIUM PICOSULFATE [Suspect]
     Active Substance: SODIUM PICOSULFATE
     Route: 054
  214. ISOFLAVONES SOY [Suspect]
     Active Substance: ISOFLAVONES SOY
     Indication: Constipation
     Route: 065
  215. STEARIC ACID [Suspect]
     Active Substance: STEARIC ACID
     Indication: Constipation
     Route: 065
  216. STEARYL ALCOHOL [Suspect]
     Active Substance: STEARYL ALCOHOL
     Indication: Constipation
     Route: 065
  217. TITANIUM [Suspect]
     Active Substance: TITANIUM
     Indication: Constipation
     Route: 065
  218. TRELEGY ELLIPTA [Suspect]
     Active Substance: FLUTICASONE FUROATE\UMECLIDINIUM BROMIDE\VILANTEROL TRIFENATATE
     Indication: Product used for unknown indication
     Route: 065
  219. UMECLIDINIUM BROMIDE [Suspect]
     Active Substance: UMECLIDINIUM BROMIDE
     Indication: Dyspnoea
     Route: 048
  220. UMECLIDINIUM BROMIDE\VILANTEROL TRIFENATATE [Suspect]
     Active Substance: UMECLIDINIUM BROMIDE\VILANTEROL TRIFENATATE
     Indication: Dyspnoea
     Route: 048
  221. VASOPRESSIN [Suspect]
     Active Substance: VASOPRESSIN
     Indication: Product used for unknown indication
     Route: 065
  222. VASOPRESSIN [Suspect]
     Active Substance: VASOPRESSIN
     Indication: Drug therapy
     Route: 042
  223. VILANTEROL TRIFENATATE [Suspect]
     Active Substance: VILANTEROL TRIFENATATE
     Indication: Product used for unknown indication
     Route: 065
  224. VITAMIN C [Suspect]
     Active Substance: ASCORBIC ACID
     Indication: Constipation
     Route: 065
  225. VITAMIN C [Suspect]
     Active Substance: ASCORBIC ACID
     Route: 048
  226. VITAMIN E [Suspect]
     Active Substance: .ALPHA.-TOCOPHEROL
     Indication: Nutritional supplementation
     Route: 042
  227. VITAMIN E [Suspect]
     Active Substance: .ALPHA.-TOCOPHEROL
     Route: 042
  228. .ALPHA.-TOCOPHEROL [Suspect]
     Active Substance: .ALPHA.-TOCOPHEROL
     Indication: Constipation
     Route: 065
  229. WARFARIN [Suspect]
     Active Substance: WARFARIN
     Indication: Thrombosis
     Route: 048
  230. WARFARIN [Suspect]
     Active Substance: WARFARIN
     Indication: Product used for unknown indication
     Route: 048
  231. WARFARIN [Suspect]
     Active Substance: WARFARIN
     Route: 048
  232. XANTOFYL PALMITATE [Suspect]
     Active Substance: XANTOFYL PALMITATE
     Indication: Nutritional supplementation
     Route: 042
  233. XANTOFYL PALMITATE [Suspect]
     Active Substance: XANTOFYL PALMITATE
     Route: 042
  234. ZOCOR [Suspect]
     Active Substance: SIMVASTATIN
     Indication: Blood cholesterol increased
     Route: 065
  235. ZOCOR [Suspect]
     Active Substance: SIMVASTATIN
     Route: 048
  236. ARANESP [Suspect]
     Active Substance: DARBEPOETIN ALFA
     Indication: Anaemia
     Route: 065
  237. ARANESP [Suspect]
     Active Substance: DARBEPOETIN ALFA
     Route: 042
  238. ARANESP [Suspect]
     Active Substance: DARBEPOETIN ALFA
     Route: 042
  239. ARANESP [Suspect]
     Active Substance: DARBEPOETIN ALFA
     Route: 042
  240. ARANESP [Suspect]
     Active Substance: DARBEPOETIN ALFA
     Route: 042
  241. ARANESP [Suspect]
     Active Substance: DARBEPOETIN ALFA
     Route: 042
  242. ARANESP [Suspect]
     Active Substance: DARBEPOETIN ALFA
     Route: 042
  243. BETA CAROTENE [Suspect]
     Active Substance: BETA CAROTENE
     Indication: Nutritional supplementation
     Route: 065
  244. BETA CAROTENE [Suspect]
     Active Substance: BETA CAROTENE
     Route: 065
  245. BISMUTH SUBNITRATE [Suspect]
     Active Substance: BISMUTH SUBNITRATE
     Indication: Constipation
     Route: 065
  246. BISMUTH SUBNITRATE [Suspect]
     Active Substance: BISMUTH SUBNITRATE
     Route: 054
  247. CALCIUM CHLORIDE\MAGNESIUM CHLORIDE\POTASSIUM CHLORIDE\SODIUM CHLORIDE [Suspect]
     Active Substance: CALCIUM CHLORIDE\MAGNESIUM CHLORIDE\POTASSIUM CHLORIDE\SODIUM CHLORIDE
     Indication: Nutritional supplementation
     Route: 065
  248. DEXTROSE [Suspect]
     Active Substance: DEXTROSE
     Indication: Nutritional supplementation
     Route: 042
  249. DEXTROSE [Suspect]
     Active Substance: DEXTROSE
     Route: 042
  250. DEXTROSE\SODIUM CHLORIDE [Suspect]
     Active Substance: DEXTROSE\SODIUM CHLORIDE
     Indication: Nutritional supplementation
     Route: 042
  251. DEXTROSE\SODIUM CHLORIDE [Suspect]
     Active Substance: DEXTROSE\SODIUM CHLORIDE
     Route: 042
  252. DOBUTAMINE HYDROCHLORIDE [Suspect]
     Active Substance: DOBUTAMINE HYDROCHLORIDE
     Indication: Cardiogenic shock
     Route: 042
  253. DOBUTAMINE HYDROCHLORIDE [Suspect]
     Active Substance: DOBUTAMINE HYDROCHLORIDE
     Route: 042
  254. FENOTEROL [Suspect]
     Active Substance: FENOTEROL
     Indication: Dyspnoea
     Route: 050
  255. FENOTEROL [Suspect]
     Active Substance: FENOTEROL
     Route: 065
  256. FLUTICASONE FUROATE [Suspect]
     Active Substance: FLUTICASONE FUROATE
     Indication: Nutritional supplementation
     Route: 065
  257. FLUTICASONE FUROATE [Suspect]
     Active Substance: FLUTICASONE FUROATE
     Route: 065
  258. HEPARIN SODIUM [Suspect]
     Active Substance: HEPARIN SODIUM
     Indication: Anticoagulant therapy
     Route: 042
  259. HEPARIN SODIUM [Suspect]
     Active Substance: HEPARIN SODIUM
     Route: 042
  260. HEPARIN SODIUM [Suspect]
     Active Substance: HEPARIN SODIUM
     Route: 042
  261. HYDROMORPHONE HYDROCHLORIDE [Suspect]
     Active Substance: HYDROMORPHONE HYDROCHLORIDE
     Indication: Analgesic therapy
     Route: 058
  262. HYDROMORPHONE HYDROCHLORIDE [Suspect]
     Active Substance: HYDROMORPHONE HYDROCHLORIDE
     Route: 058
  263. HYDROMORPHONE HYDROCHLORIDE [Suspect]
     Active Substance: HYDROMORPHONE HYDROCHLORIDE
     Route: 058
  264. IPRATROPIUM BROMIDE\XYLOMETAZOLINE HYDROCHLORIDE [Suspect]
     Active Substance: IPRATROPIUM BROMIDE\XYLOMETAZOLINE HYDROCHLORIDE
     Indication: Dyspnoea
     Route: 065
  265. ASIAN GINSENG [Suspect]
     Active Substance: ASIAN GINSENG
     Indication: Nutritional supplementation
     Route: 065
  266. LANSOPRAZOLE [Suspect]
     Active Substance: LANSOPRAZOLE
     Indication: Intentional product misuse
     Route: 048
  267. LANSOPRAZOLE [Suspect]
     Active Substance: LANSOPRAZOLE
     Indication: Antacid therapy
     Route: 048
  268. LYPRESSIN [Suspect]
     Active Substance: LYPRESSIN
     Indication: Drug therapy
     Route: 042
  269. MAGNESIUM OXIDE [Suspect]
     Active Substance: MAGNESIUM OXIDE
     Indication: Constipation
     Route: 065
  270. OSMITROL [Suspect]
     Active Substance: MANNITOL
     Indication: Nutritional supplementation
     Route: 042
  271. POLYETHYLENE GLYCOL 4000 [Suspect]
     Active Substance: POLYETHYLENE GLYCOL 4000
     Indication: Constipation
     Route: 048
  272. VITAMINS [Suspect]
     Active Substance: VITAMINS
     Indication: Vitamin supplementation
     Route: 042
  273. ALBUTEROL [Suspect]
     Active Substance: ALBUTEROL
     Indication: Chronic obstructive pulmonary disease
     Route: 050
  274. ALBUTEROL [Suspect]
     Active Substance: ALBUTEROL
     Route: 065
  275. UMECLIDINIUM BROMIDE\VILANTEROL TRIFENATATE [Suspect]
     Active Substance: UMECLIDINIUM BROMIDE\VILANTEROL TRIFENATATE
     Indication: Dyspnoea
     Route: 048
  276. WARFARIN SODIUM [Suspect]
     Active Substance: WARFARIN SODIUM
     Indication: Thrombosis
     Route: 048
  277. WARFARIN SODIUM [Suspect]
     Active Substance: WARFARIN SODIUM
     Route: 048
  278. XYLOMETAZOLINE [Suspect]
     Active Substance: XYLOMETAZOLINE
     Indication: Dyspnoea
     Route: 065
  279. XYLOMETAZOLINE [Suspect]
     Active Substance: XYLOMETAZOLINE
     Route: 065
  280. ARANESP [Concomitant]
     Active Substance: DARBEPOETIN ALFA
     Indication: Product used for unknown indication
     Route: 042
  281. ARANESP [Concomitant]
     Active Substance: DARBEPOETIN ALFA
     Indication: Anaemia
     Route: 042
  282. ARANESP [Concomitant]
     Active Substance: DARBEPOETIN ALFA
     Route: 042
  283. ARANESP [Concomitant]
     Active Substance: DARBEPOETIN ALFA
     Route: 065
  284. ARANESP [Concomitant]
     Active Substance: DARBEPOETIN ALFA
     Route: 042
  285. BETA CAROTENE [Concomitant]
     Active Substance: BETA CAROTENE
     Indication: Product used for unknown indication
     Route: 065
  286. HYDROMORPHONE [Concomitant]
     Active Substance: HYDROMORPHONE
     Indication: Product used for unknown indication
     Route: 058
  287. HYDROMORPHONE [Concomitant]
     Active Substance: HYDROMORPHONE
     Indication: Analgesic therapy
     Route: 065
  288. HYDROMORPHONE [Concomitant]
     Active Substance: HYDROMORPHONE
     Route: 065
  289. HYDROMORPHONE [Concomitant]
     Active Substance: HYDROMORPHONE
     Route: 065
  290. HYDROMORPHONE [Concomitant]
     Active Substance: HYDROMORPHONE
     Route: 058
  291. POTASSIUM CHLORIDE [Concomitant]
     Active Substance: POTASSIUM CHLORIDE
     Indication: Product used for unknown indication
     Route: 065
  292. POTASSIUM CHLORIDE [Concomitant]
     Active Substance: POTASSIUM CHLORIDE
     Indication: Constipation
     Route: 065
  293. DISODIUM HYDROGEN CITRATE [Concomitant]
     Active Substance: DISODIUM HYDROGEN CITRATE
     Indication: Thrombosis
     Route: 065
  294. VITAMIN C [Concomitant]
     Active Substance: ASCORBIC ACID
     Indication: Product used for unknown indication
     Route: 065
  295. RIBOFLAVIN 5^-PHOSPHATE SODIUM [Concomitant]
     Active Substance: RIBOFLAVIN 5^-PHOSPHATE SODIUM
     Indication: Product used for unknown indication
     Route: 048
  296. MAGNESIUM OXIDE [Suspect]
     Active Substance: MAGNESIUM OXIDE
  297. MAGNESIUM TRISILICATE [Suspect]
     Active Substance: MAGNESIUM TRISILICATE
  298. SODIUM PHOSPHATE MONOBASIC MONOHYDRATE [Suspect]
     Active Substance: SODIUM PHOSPHATE, MONOBASIC, MONOHYDRATE
  299. MAGNESIUM OXIDE [Suspect]
     Active Substance: MAGNESIUM OXIDE
  300. MAGNESIUM TRISILICATE [Suspect]
     Active Substance: MAGNESIUM TRISILICATE
  301. SODIUM PHOSPHATE MONOBASIC MONOHYDRATE [Suspect]
     Active Substance: SODIUM PHOSPHATE, MONOBASIC, MONOHYDRATE

REACTIONS (20)
  - Abdominal distension [Fatal]
  - Abdominal pain [Fatal]
  - Appendicitis [Fatal]
  - Appendicolith [Fatal]
  - Ascites [Fatal]
  - Blood phosphorus increased [Fatal]
  - Cardiogenic shock [Fatal]
  - Condition aggravated [Fatal]
  - Constipation [Fatal]
  - Dry mouth [Fatal]
  - General physical health deterioration [Fatal]
  - Hyponatraemia [Fatal]
  - Multiple organ dysfunction syndrome [Fatal]
  - Nausea [Fatal]
  - Off label use [Fatal]
  - Sepsis [Fatal]
  - Somnolence [Fatal]
  - Stress [Fatal]
  - Ventricular fibrillation [Fatal]
  - Vomiting [Fatal]
